FAERS Safety Report 4384644-1 (Version None)
Quarter: 2004Q2

REPORT INFORMATION
  Report Type: 
  Country: None (occurrence: None)
  Receive Date: 20040625
  Receipt Date: 20040206
  Transmission Date: 20050107
  Serious: No
  Sender: FDA-Public Use
  Company Number: US-BRISTOL-MYERS SQUIBB COMPANY-12499604

PATIENT
  Age: 67 Year
  Sex: Male
  Weight: 102 kg

DRUGS (10)
  1. SINEMET CR [Suspect]
     Indication: PARKINSON'S DISEASE
     Dosage: DOSE VALUE CHANGED SEVERAL TIMES OVER 5 YEAR PERIOD
     Route: 048
  2. SINEMET CR [Suspect]
     Indication: PARKINSON'S DISEASE
     Dosage: DOSE VALUE=25MG/100MG TABLET
     Route: 048
  3. CARDIZEM [Concomitant]
  4. MIRAPEX [Concomitant]
  5. COMTAN [Concomitant]
  6. ZOLOFT [Concomitant]
  7. LIPITOR [Concomitant]
  8. ASPIRIN [Concomitant]
  9. VITAMIN C [Concomitant]
  10. VITAMIN E [Concomitant]

REACTIONS (6)
  - DRUG INEFFECTIVE [None]
  - DYSKINESIA [None]
  - DYSTONIA [None]
  - FEELING JITTERY [None]
  - MUSCLE CRAMP [None]
  - NERVOUSNESS [None]
